FAERS Safety Report 6598699-7 (Version None)
Quarter: 2010Q1

REPORT INFORMATION
  Report Type: 
  Country: None (occurrence: None)
  Receive Date: 20100224
  Receipt Date: 20100105
  Transmission Date: 20100710
  Serious: Yes (Death)
  Sender: FDA-Public Use
  Company Number: US-TYCO HEALTHCARE/MALLINCKRODT-T201000506

PATIENT
  Age: 47 Year
  Sex: Male

DRUGS (5)
  1. FLUOXETINE [Suspect]
     Route: 048
  2. BACLOFEN [Suspect]
     Route: 048
  3. TRIHEXYPHENIDYL HCL [Suspect]
     Route: 048
  4. QUETIAPINE [Suspect]
     Route: 048
  5. DIAZEPAM [Suspect]
     Route: 048

REACTIONS (2)
  - CARDIO-RESPIRATORY ARREST [None]
  - COMPLETED SUICIDE [None]
